FAERS Safety Report 14268056 (Version 1)
Quarter: 2017Q4

REPORT INFORMATION
  Report Type: Spontaneous
  Country: BG (occurrence: BG)
  Receive Date: 20171211
  Receipt Date: 20171211
  Transmission Date: 20180321
  Serious: Yes (Other)
  Sender: FDA-Public Use
  Company Number: PHHY2017BG176577

PATIENT
  Sex: Male
  Weight: 70 kg

DRUGS (2)
  1. TAFINLAR [Suspect]
     Active Substance: DABRAFENIB MESYLATE
     Indication: METASTASES TO LUNG
     Dosage: 150 MG, BID
     Route: 048
     Dates: start: 20170520, end: 20171129
  2. MEKINIST [Suspect]
     Active Substance: TRAMETINIB DIMETHYL SULFOXIDE
     Indication: METASTASES TO LUNG
     Dosage: 2 M, QD
     Route: 048
     Dates: start: 20170520, end: 20171129

REACTIONS (2)
  - Oedema peripheral [Unknown]
  - Deep vein thrombosis [Recovering/Resolving]

NARRATIVE: CASE EVENT DATE: 20171128
